FAERS Safety Report 18236921 (Version 7)
Quarter: 2022Q1

REPORT INFORMATION
  Report Type: Report from Study
  Country: US (occurrence: US)
  Receive Date: 20200907
  Receipt Date: 20220122
  Transmission Date: 20220423
  Serious: Yes (Hospitalization, Disabling, Other)
  Sender: FDA-Public Use
  Company Number: NVSC2020US239427

PATIENT
  Sex: Female
  Weight: 130 kg

DRUGS (3)
  1. PROMACTA [Suspect]
     Active Substance: ELTROMBOPAG OLAMINE
     Indication: Immune thrombocytopenia
     Dosage: 12.5 MG (WEEK DAYS ONLY)
     Route: 065
     Dates: start: 2018
  2. PROMACTA [Suspect]
     Active Substance: ELTROMBOPAG OLAMINE
     Dosage: UNK
     Route: 065
  3. ARICEPT [Concomitant]
     Active Substance: DONEPEZIL HYDROCHLORIDE
     Indication: Dementia
     Dosage: 5 MG, QD
     Route: 065

REACTIONS (15)
  - Psychotic disorder [Not Recovered/Not Resolved]
  - Hallucination [Recovering/Resolving]
  - Balance disorder [Unknown]
  - Peripheral swelling [Unknown]
  - Rash macular [Unknown]
  - Feeling hot [Unknown]
  - Platelet count decreased [Unknown]
  - Confusional state [Unknown]
  - Blood urine present [Unknown]
  - Memory impairment [Unknown]
  - Aggression [Unknown]
  - Anger [Unknown]
  - Hostility [Unknown]
  - Abnormal behaviour [Unknown]
  - Inappropriate schedule of product administration [Unknown]
